FAERS Safety Report 22659607 (Version 1)
Quarter: 2023Q2

REPORT INFORMATION
  Report Type: Spontaneous
  Country: US (occurrence: US)
  Receive Date: 20230630
  Receipt Date: 20230630
  Transmission Date: 20230721
  Serious: Yes (Hospitalization)
  Sender: FDA-Public Use
  Company Number: US-INCYTE CORPORATION-2023IN006733

PATIENT

DRUGS (1)
  1. JAKAFI [Suspect]
     Active Substance: RUXOLITINIB
     Indication: Disease susceptibility
     Dosage: 20 MILLIGRAM, BID
     Route: 048
     Dates: start: 202112

REACTIONS (2)
  - Ill-defined disorder [Unknown]
  - Off label use [Unknown]

NARRATIVE: CASE EVENT DATE: 20211201
